FAERS Safety Report 25830025 (Version 1)
Quarter: 2025Q3

REPORT INFORMATION
  Report Type: Spontaneous
  Country: US (occurrence: US)
  Receive Date: 20250922
  Receipt Date: 20250922
  Transmission Date: 20251021
  Serious: No
  Sender: BIOGEN
  Company Number: US-BIOGEN-2022BI01101120

PATIENT
  Age: 51 Year
  Sex: Male

DRUGS (4)
  1. VUMERITY [Suspect]
     Active Substance: DIROXIMEL FUMARATE
     Indication: Multiple sclerosis
     Route: 050
     Dates: start: 202112
  2. VUMERITY [Suspect]
     Active Substance: DIROXIMEL FUMARATE
     Dosage: TWO CAPSULES BID TO EQUAL 934 MG A DAY
     Route: 050
     Dates: start: 20220222
  3. METFORMIN [Concomitant]
     Active Substance: METFORMIN HYDROCHLORIDE
     Route: 050
  4. INSULIN NOS [Concomitant]
     Active Substance: INSULIN NOS
     Route: 050

REACTIONS (4)
  - Fatigue [Not Recovered/Not Resolved]
  - Stress [Unknown]
  - Abdominal discomfort [Recovered/Resolved]
  - Anxiety [Unknown]

NARRATIVE: CASE EVENT DATE: 20211201
